FAERS Safety Report 8515543-9 (Version None)
Quarter: 2012Q3

REPORT INFORMATION
  Report Type: 
  Country: None (occurrence: None)
  Receive Date: 20120717
  Receipt Date: 20120711
  Transmission Date: 20120928
  Serious: Yes (Death)
  Sender: FDA-Public Use
  Company Number: US-TYCO HEALTHCARE/MALLINCKRODT-T201101381

PATIENT
  Age: 23 Year
  Sex: Female

DRUGS (2)
  1. INTRAVENOUS FLUIDS [Concomitant]
  2. OPTIRAY 160 [Suspect]
     Indication: COMPUTERISED TOMOGRAM
     Dosage: 100 ML, SINGLE
     Route: 042

REACTIONS (2)
  - CARDIO-RESPIRATORY ARREST [None]
  - ANAPHYLACTOID REACTION [None]
